FAERS Safety Report 9105503 (Version 3)
Quarter: 2015Q2

REPORT INFORMATION
  Report Type: Report from Study
  Country: US (occurrence: US)
  Receive Date: 20130220
  Receipt Date: 20150626
  Transmission Date: 20150821
  Serious: Yes (Hospitalization)
  Sender: FDA-Public Use
  Company Number: US-UCBSA-078437

PATIENT
  Age: 27 Year
  Sex: Male
  Weight: 67.13 kg

DRUGS (8)
  1. LAMICTAL [Concomitant]
     Active Substance: LAMOTRIGINE
     Dosage: 200 MG, 2X/DAY (BID)
  2. INVANZ [Concomitant]
     Active Substance: ERTAPENEM SODIUM
     Dosage: 1 G, ONCE DAILY (QD)
  3. CERTOLIZUMAB PEGOL CD [Suspect]
     Active Substance: CERTOLIZUMAB PEGOL
     Indication: CROHN^S DISEASE
     Dosage: DOSE: 200 MG
     Route: 058
     Dates: start: 20090609, end: 200906
  4. OXYCONTIN [Concomitant]
     Active Substance: OXYCODONE HYDROCHLORIDE
     Dosage: 30 MG, 2X/DAY (BID)
  5. CERTOLIZUMAB PEGOL CD [Suspect]
     Active Substance: CERTOLIZUMAB PEGOL
     Dosage: DOSE: 400 MG
     Route: 058
     Dates: start: 20090622, end: 20121101
  6. CLONAZEPAM. [Concomitant]
     Active Substance: CLONAZEPAM
     Dosage: 1 MG BID AND 0.5 MG IN AFTERNOON
  7. PREDNISONE. [Concomitant]
     Active Substance: PREDNISONE
     Indication: CROHN^S DISEASE
     Dosage: 40 MG, ONCE DAILY (QD)
     Dates: start: 20090601
  8. DILAUDID [Concomitant]
     Active Substance: HYDROMORPHONE HYDROCHLORIDE
     Dosage: 4 MG 2-3 HOURS PRN

REACTIONS (1)
  - Pelvic abscess [Recovered/Resolved]

NARRATIVE: CASE EVENT DATE: 20121002
